FAERS Safety Report 14157798 (Version 2)
Quarter: 2017Q4

REPORT INFORMATION
  Report Type: Spontaneous
  Country: US (occurrence: US)
  Receive Date: 20171105
  Receipt Date: 20171225
  Transmission Date: 20180321
  Serious: No
  Sender: FDA-Public Use
  Company Number: US-AMGEN-USASP2017165439

PATIENT
  Sex: Female

DRUGS (2)
  1. MTX [Suspect]
     Active Substance: METHOTREXATE SODIUM
     Indication: RHEUMATOID ARTHRITIS
     Dosage: UNK
     Route: 065
  2. ENBREL [Suspect]
     Active Substance: ETANERCEPT
     Indication: RHEUMATOID ARTHRITIS
     Dosage: UNK
     Route: 065
     Dates: start: 201707, end: 201710

REACTIONS (5)
  - Dyspnoea [Unknown]
  - Chills [Unknown]
  - Raynaud^s phenomenon [Unknown]
  - Drug ineffective [Unknown]
  - Injection site reaction [Unknown]

NARRATIVE: CASE EVENT DATE: 2017
